FAERS Safety Report 13739093 (Version 1)
Quarter: 2017Q3

REPORT INFORMATION
  Report Type: Report from Study
  Country: US (occurrence: US)
  Receive Date: 20170710
  Receipt Date: 20170710
  Transmission Date: 20171127
  Serious: No
  Sender: FDA-Public Use
  Company Number: US-SAOL THERAPEUTICS-2017SAO00253

PATIENT
  Age: 69 Year
  Sex: Female
  Weight: 85.26 kg

DRUGS (24)
  1. DILAUDID [Suspect]
     Active Substance: HYDROMORPHONE HYDROCHLORIDE
     Dosage: 0.4002 MG, \DAY
     Route: 037
     Dates: start: 20170112
  2. BUPIVACAINE. [Suspect]
     Active Substance: BUPIVACAINE
     Dosage: 18.563 MG, \DAY
     Route: 037
     Dates: start: 20160121, end: 20160310
  3. CLONIDINE. [Suspect]
     Active Substance: CLONIDINE
     Dosage: 111.67 ?G, \DAY
     Route: 037
     Dates: start: 20160121, end: 20160310
  4. COMPOUNDED BACLOFEN [Suspect]
     Active Substance: BACLOFEN
     Dosage: 271.61 ?G, \DAY
     Route: 037
     Dates: start: 20160310
  5. COMPOUNDED BACLOFEN [Suspect]
     Active Substance: BACLOFEN
     Dosage: 321.27 ?G, \DAY
     Route: 037
     Dates: start: 20160310
  6. BUPIVACAINE. [Suspect]
     Active Substance: BUPIVACAINE
     Dosage: 12.007 MG, \DAY
     Route: 037
     Dates: start: 20170112
  7. CLONIDINE. [Suspect]
     Active Substance: CLONIDINE
     Dosage: 206.74 ?G, \DAY
     Route: 037
     Dates: start: 20170112
  8. CLONIDINE. [Suspect]
     Active Substance: CLONIDINE
     Dosage: 92.81 ?G, \DAY
     Route: 037
     Dates: start: 20160121, end: 20160310
  9. COMPOUNDED BACLOFEN [Suspect]
     Active Substance: BACLOFEN
     Indication: PAIN
     Dosage: 247.51 ?G, \DAY
     Route: 037
     Dates: start: 20160121, end: 20160310
  10. COMPOUNDED BACLOFEN [Suspect]
     Active Substance: BACLOFEN
     Indication: PAIN
     Dosage: 400.2 ?G, \DAY
     Route: 037
     Dates: start: 20170112
  11. DILAUDID [Suspect]
     Active Substance: HYDROMORPHONE HYDROCHLORIDE
     Dosage: 0.37224 MG, \DAY
     Route: 037
     Dates: start: 20160121, end: 20160310
  12. DILAUDID [Suspect]
     Active Substance: HYDROMORPHONE HYDROCHLORIDE
     Dosage: 0.33951 MG, \DAY
     Route: 037
     Dates: start: 20160310
  13. COMPOUNDED BACLOFEN [Suspect]
     Active Substance: BACLOFEN
     Indication: SURGERY
     Dosage: 297.79 ?G, \DAY
     Route: 037
     Dates: start: 20160121, end: 20160310
  14. DILAUDID [Suspect]
     Active Substance: HYDROMORPHONE HYDROCHLORIDE
     Dosage: 0.5168 MG, \DAY
     Route: 037
     Dates: start: 20170112
  15. BUPIVACAINE. [Suspect]
     Active Substance: BUPIVACAINE
     Dosage: 22.334 MG, \DAY
     Route: 037
     Dates: start: 20160121, end: 20160310
  16. BUPIVACAINE. [Suspect]
     Active Substance: BUPIVACAINE
     Dosage: 15.505 MG, \DAY
     Route: 037
     Dates: start: 20170112
  17. CLONIDINE. [Suspect]
     Active Substance: CLONIDINE
     Dosage: 101.85 ?G, \DAY
     Route: 037
     Dates: start: 20160310
  18. DILAUDID [Suspect]
     Active Substance: HYDROMORPHONE HYDROCHLORIDE
     Dosage: 0.30938 MG, \DAY
     Route: 037
     Dates: start: 20160121, end: 20160310
  19. BUPIVACAINE. [Suspect]
     Active Substance: BUPIVACAINE
     Dosage: 20.371 MG, \DAY
     Route: 037
     Dates: start: 20160310
  20. CLONIDINE. [Suspect]
     Active Substance: CLONIDINE
     Dosage: 120.47 ?G, \DAY
     Route: 037
     Dates: start: 20160310
  21. COMPOUNDED BACLOFEN [Suspect]
     Active Substance: BACLOFEN
     Indication: SURGERY
     Dosage: 516.8 ?G, \DAY
     Route: 037
     Dates: start: 20170112
  22. DILAUDID [Suspect]
     Active Substance: HYDROMORPHONE HYDROCHLORIDE
     Dosage: 0.40158 MG, \DAY
     Route: 037
     Dates: start: 20160310
  23. BUPIVACAINE. [Suspect]
     Active Substance: BUPIVACAINE
     Dosage: 24.095 MG, \DAY
     Route: 037
     Dates: start: 20160310
  24. CLONIDINE. [Suspect]
     Active Substance: CLONIDINE
     Dosage: 160.09 ?G, \DAY
     Route: 037
     Dates: start: 20170112

REACTIONS (5)
  - Fall [Unknown]
  - Hypoaesthesia [Unknown]
  - Device dislocation [Not Recovered/Not Resolved]
  - Urinary incontinence [Recovered/Resolved]
  - Off label use [Not Recovered/Not Resolved]

NARRATIVE: CASE EVENT DATE: 20160412
